FAERS Safety Report 11065231 (Version 3)
Quarter: 2015Q3

REPORT INFORMATION
  Report Type: Spontaneous
  Country: US (occurrence: US)
  Receive Date: 20150424
  Receipt Date: 20150812
  Transmission Date: 20151125
  Serious: No
  Sender: FDA-Public Use
  Company Number: US-JNJFOC-20150312468

PATIENT
  Sex: Male

DRUGS (9)
  1. NUCYNTA ER [Suspect]
     Active Substance: TAPENTADOL HYDROCHLORIDE
     Indication: PRODUCT USED FOR UNKNOWN INDICATION
     Route: 048
  2. SKELAXIN [Concomitant]
     Active Substance: METAXALONE
     Route: 048
     Dates: start: 20141215
  3. ROBAXIN [Concomitant]
     Active Substance: METHOCARBAMOL
     Route: 048
     Dates: start: 20140827
  4. DICLOFENAC [Concomitant]
     Active Substance: DICLOFENAC
     Route: 048
     Dates: start: 20140716
  5. ETODOLAC. [Concomitant]
     Active Substance: ETODOLAC
     Route: 048
     Dates: start: 20140527
  6. PAMELOR [Concomitant]
     Active Substance: NORTRIPTYLINE HYDROCHLORIDE
     Route: 048
     Dates: start: 20150108
  7. CYCLOBENZAPRINE [Concomitant]
     Active Substance: CYCLOBENZAPRINE
     Route: 048
     Dates: start: 20140716
  8. LYRICA [Concomitant]
     Active Substance: PREGABALIN
     Route: 048
     Dates: start: 20140527
  9. NUCYNTA ER [Suspect]
     Active Substance: TAPENTADOL HYDROCHLORIDE
     Indication: PRODUCT USED FOR UNKNOWN INDICATION
     Route: 048

REACTIONS (1)
  - Breakthrough pain [Unknown]
